FAERS Safety Report 23442181 (Version 1)
Quarter: 2024Q1

REPORT INFORMATION
  Report Type: Spontaneous
  Country: BR (occurrence: BR)
  Receive Date: 20240125
  Receipt Date: 20240125
  Transmission Date: 20240410
  Serious: Yes (Other)
  Sender: FDA-Public Use
  Company Number: BR-MLMSERVICE-20240115-4771370-1

PATIENT
  Age: 65 Year
  Sex: Male

DRUGS (7)
  1. VANCOMYCIN [Suspect]
     Active Substance: VANCOMYCIN
     Indication: Febrile neutropenia
  2. CEFEPIME [Suspect]
     Active Substance: CEFEPIME HYDROCHLORIDE
     Indication: Febrile neutropenia
  3. IMIPENEM [Suspect]
     Active Substance: IMIPENEM
     Indication: Febrile neutropenia
  4. FILGRASTIM [Concomitant]
     Active Substance: FILGRASTIM
  5. IMIPENEM [Suspect]
     Active Substance: IMIPENEM
     Indication: Pancytopenia
  6. CEFEPIME [Suspect]
     Active Substance: CEFEPIME HYDROCHLORIDE
     Indication: Pancytopenia
  7. VANCOMYCIN [Suspect]
     Active Substance: VANCOMYCIN
     Indication: Pancytopenia

REACTIONS (1)
  - Erythema multiforme [Unknown]
